FAERS Safety Report 21725404 (Version 6)
Quarter: 2023Q2

REPORT INFORMATION
  Report Type: Report from Study
  Country: CN (occurrence: None)
  Receive Date: 20221214
  Receipt Date: 20230608
  Transmission Date: 20230722
  Serious: Yes (Hospitalization)
  Sender: FDA-Public Use
  Company Number: CN-ROCHE-3239691

PATIENT
  Age: 59 Year
  Sex: Male
  Weight: 47 kg

DRUGS (27)
  1. ATEZOLIZUMAB [Suspect]
     Active Substance: ATEZOLIZUMAB
     Indication: Metastatic gastric cancer
     Dosage: ON 15/NOV/2022: DOSE LAST STUDY DRUG ADMIN PRIOR AE IS 1200 MG
     Route: 042
     Dates: start: 20220811
  2. CAPECITABINE [Suspect]
     Active Substance: CAPECITABINE
     Indication: Metastatic gastric cancer
     Dosage: ON 28/NOV/2022, LSAT STUDY DRUG ADMIN PRIOR AE: 1500 MG.
     Route: 048
     Dates: start: 20220811
  3. TIRAGOLUMAB [Suspect]
     Active Substance: TIRAGOLUMAB
     Indication: Metastatic gastric cancer
     Dosage: ON 15/NOV/2022, MOST RECENT DOSE OF STUDY PRIOR TO AE 600 MG
     Route: 042
     Dates: start: 20220811
  4. OXALIPLATIN [Suspect]
     Active Substance: OXALIPLATIN
     Indication: Metastatic gastric cancer
     Dosage: ON 15/NOV/2022, MOST RECENT DOSE ADMIN PRIOR TO AE 141 MG.
     Route: 042
     Dates: start: 20220811
  5. FAMOTIDINE [Concomitant]
     Active Substance: FAMOTIDINE
     Route: 048
     Dates: start: 20220811, end: 20221130
  6. CELECOXIB [Concomitant]
     Active Substance: CELECOXIB
     Indication: Analgesic therapy
     Dosage: NO
     Route: 048
     Dates: start: 20220922, end: 20221114
  7. DOLASETRON MESYLATE [Concomitant]
     Active Substance: DOLASETRON MESYLATE
     Dosage: GIVEN FOR PROPHYLAXIS IS YES ;ONGOING: NO
     Dates: start: 20221115, end: 20221115
  8. METOCLOPRAMIDE HYDROCHLORIDE [Concomitant]
     Active Substance: METOCLOPRAMIDE HYDROCHLORIDE
     Dosage: GIVEN FOR PROPHYLAXIS IS YES ;ONGOING: NO
     Dates: start: 20221115, end: 20221115
  9. RANITIDINE HYDROCHLORIDE [Concomitant]
     Active Substance: RANITIDINE HYDROCHLORIDE
     Dosage: GIVEN FOR PROPHYLAXIS IS YES ;ONGOING: NO
     Dates: start: 20221115, end: 20221115
  10. RANITIDINE HYDROCHLORIDE [Concomitant]
     Active Substance: RANITIDINE HYDROCHLORIDE
     Dates: start: 20221209, end: 20221213
  11. OXYCODONE HYDROCHLORIDE [Concomitant]
     Active Substance: OXYCODONE HYDROCHLORIDE
     Indication: Analgesic therapy
     Dosage: PROLONGED RELEASE TABLET
     Dates: start: 20221116
  12. POTASSIUM CITRATE [Concomitant]
     Active Substance: POTASSIUM CITRATE
     Indication: Hypokalaemia
     Dates: start: 20221208, end: 20230106
  13. LEUCOGEN TABLETS [Concomitant]
     Dates: start: 20221208, end: 20230106
  14. MONTMORILLONITE [Concomitant]
     Active Substance: MONTMORILLONITE
     Indication: Diarrhoea
     Dosage: POWDER
     Dates: start: 20221207, end: 20221212
  15. LIPOSYN (R) INTRAVENOUS FAT EMULSION [Concomitant]
     Active Substance: LIPOSYN (R) INTRAVENOUS FAT EMULSION
     Dates: start: 20221208, end: 20221212
  16. POTASSIUM CHLORIDE [Concomitant]
     Active Substance: POTASSIUM CHLORIDE
     Dates: start: 20221208, end: 20221209
  17. POTASSIUM CHLORIDE [Concomitant]
     Active Substance: POTASSIUM CHLORIDE
     Dates: start: 20221210, end: 20221212
  18. CALCIUM CHLORIDE\POTASSIUM CHLORIDE\SODIUM CHLORIDE\SODIUM LACTATE [Concomitant]
     Active Substance: CALCIUM CHLORIDE\POTASSIUM CHLORIDE\SODIUM CHLORIDE\SODIUM LACTATE
     Dates: start: 20221209, end: 20221212
  19. CLOSTRIDIUM BUTYRICUM TO-A [Concomitant]
     Indication: Diarrhoea
     Dates: start: 20221210, end: 20221213
  20. HYDROXYETHYL STARCH 130/0.4 AND SODIUM CHLORIDE [Concomitant]
     Dates: start: 20221210, end: 20221212
  21. AVATROMBOPAG [Concomitant]
     Active Substance: AVATROMBOPAG
     Indication: Platelet count decreased
     Dates: start: 20221213, end: 20221217
  22. ASPIRIN DL-LYSINE [Concomitant]
     Active Substance: ASPIRIN DL-LYSINE
     Dates: start: 20221208, end: 20221208
  23. DOPAMINE HYDROCHLORIDE [Concomitant]
     Active Substance: DOPAMINE HYDROCHLORIDE
     Dates: start: 20221209, end: 20221209
  24. DOPAMINE HYDROCHLORIDE [Concomitant]
     Active Substance: DOPAMINE HYDROCHLORIDE
     Dates: start: 20221212, end: 20221212
  25. QINGKAILING RUANJIAONANG [Concomitant]
  26. CALCIUM CARBONATE [Concomitant]
     Active Substance: CALCIUM CARBONATE
     Dates: start: 20221212, end: 20230101
  27. VITAMIN D3 [Concomitant]
     Active Substance: CHOLECALCIFEROL
     Dates: start: 20221212, end: 20230101

REACTIONS (1)
  - Febrile neutropenia [Recovered/Resolved]

NARRATIVE: CASE EVENT DATE: 20221208
